FAERS Safety Report 7225433-X (Version None)
Quarter: 2011Q1

REPORT INFORMATION
  Report Type: 
  Country: None (occurrence: None)
  Receive Date: 20110107
  Receipt Date: 20110107
  Transmission Date: 20110831
  Serious: Yes (Other)
  Sender: FDA-Public Use
  Company Number: None

PATIENT
  Age: 71 Year
  Sex: Male
  Weight: 87.5442 kg

DRUGS (1)
  1. DILTIAZEM [Suspect]
     Indication: BLOOD PRESSURE INCREASED
     Dates: start: 20100615, end: 20101203

REACTIONS (4)
  - GAIT DISTURBANCE [None]
  - HYPERAESTHESIA [None]
  - OEDEMA PERIPHERAL [None]
  - PAIN IN EXTREMITY [None]
